FAERS Safety Report 10177887 (Version 5)
Quarter: 2015Q4

REPORT INFORMATION
  Report Type: Report from Study
  Country: JP (occurrence: JP)
  Receive Date: 20140516
  Receipt Date: 20151026
  Transmission Date: 20160304
  Serious: Yes (Hospitalization)
  Sender: FDA-Public Use
  Company Number: JP-MERCK-1405JPN007691

PATIENT
  Age: 1 Month
  Sex: Female

DRUGS (18)
  1. DIAZOXIDE [Suspect]
     Active Substance: DIAZOXIDE
     Indication: HYPOGLYCAEMIA
     Dosage: 50 MG, QD, THREE TIMES/DAY
     Route: 048
     Dates: start: 20091227, end: 20091227
  2. DIAZOXIDE [Suspect]
     Active Substance: DIAZOXIDE
     Dosage: 10 MG, 6 TIMES A DAY
     Route: 048
     Dates: start: 20091228, end: 20100108
  3. DIAZOXIDE [Suspect]
     Active Substance: DIAZOXIDE
     Dosage: 22.5 MG, QID
     Route: 048
     Dates: start: 20100706, end: 20100917
  4. DIAZOXIDE [Suspect]
     Active Substance: DIAZOXIDE
     Dosage: 30 MG, QID
     Route: 048
     Dates: start: 20101201, end: 20101207
  5. SAXIZON [Concomitant]
     Active Substance: HYDROCORTISONE SODIUM SUCCINATE
     Indication: HYPOGLYCAEMIA
     Dosage: 20 MG, QD. DIVIDED DOSE FREQUENCY UNKNOWN
     Route: 042
     Dates: start: 20091226, end: 20091226
  6. DIAZOXIDE [Suspect]
     Active Substance: DIAZOXIDE
     Dosage: 13.75 MG, QID
     Route: 048
     Dates: start: 20100109, end: 20100112
  7. DIAZOXIDE [Suspect]
     Active Substance: DIAZOXIDE
     Dosage: 12.5 MG, QID
     Route: 048
     Dates: start: 20100113, end: 20100414
  8. DIAZOXIDE [Suspect]
     Active Substance: DIAZOXIDE
     Dosage: 27.5 MG, QID
     Route: 048
     Dates: start: 20101122, end: 20101130
  9. DIAZOXIDE [Suspect]
     Active Substance: DIAZOXIDE
     Dosage: 130 MG, QD; THREE TIMES A DAY
     Route: 048
     Dates: start: 20150506
  10. SAXIZON [Concomitant]
     Active Substance: HYDROCORTISONE SODIUM SUCCINATE
     Dosage: 30 MG, QD. DIVIDED DOSE FREQUENCY UNKNOWN
     Route: 042
     Dates: start: 20091227, end: 20091227
  11. DIAZOXIDE [Suspect]
     Active Substance: DIAZOXIDE
     Dosage: 25 MG, QID
     Route: 048
     Dates: start: 20100918, end: 20101121
  12. DIAZOXIDE [Suspect]
     Active Substance: DIAZOXIDE
     Dosage: 140 MG, QD; THREE TIMES A DAY
     Route: 048
     Dates: start: 20110124, end: 20110605
  13. DIAZOXIDE [Suspect]
     Active Substance: DIAZOXIDE
     Dosage: 35 MG, QID
     Route: 048
     Dates: start: 20101208, end: 20110123
  14. DIAZOXIDE [Suspect]
     Active Substance: DIAZOXIDE
     Dosage: 50 MG, TID
     Route: 048
     Dates: start: 20110606, end: 20141005
  15. DIAZOXIDE [Suspect]
     Active Substance: DIAZOXIDE
     Dosage: 140 MG, QD; THREE TIMES A DAY
     Route: 048
     Dates: start: 20141006, end: 20150428
  16. DIAZOXIDE [Suspect]
     Active Substance: DIAZOXIDE
     Dosage: 70 MG, QD; THREE TIMES A DAY
     Route: 048
     Dates: start: 20150429, end: 20150505
  17. SANDOSTATIN [Concomitant]
     Active Substance: OCTREOTIDE ACETATE
     Indication: HYPOGLYCAEMIA
     Dosage: 24 MICROGRAM, QD
     Route: 058
     Dates: start: 20110803
  18. DIAZOXIDE [Suspect]
     Active Substance: DIAZOXIDE
     Dosage: 17.5 MG, QID
     Route: 048
     Dates: start: 20100415, end: 20100705

REACTIONS (3)
  - Oedema [Recovered/Resolved]
  - Gastroenteritis rotavirus [Recovered/Resolved]
  - Conjunctivitis allergic [Unknown]

NARRATIVE: CASE EVENT DATE: 20091229
